FAERS Safety Report 6984044-1 (Version None)
Quarter: 2010Q3

REPORT INFORMATION
  Report Type: 
  Country: None (occurrence: None)
  Receive Date: 20100915
  Receipt Date: 20090515
  Transmission Date: 20110219
  Serious: No
  Sender: FDA-Public Use
  Company Number: US-WYE-H09381809

PATIENT
  Sex: Female
  Weight: 50.85 kg

DRUGS (4)
  1. PRISTIQ [Suspect]
     Indication: DEPRESSION
     Route: 048
     Dates: start: 20090507
  2. PRISTIQ [Suspect]
     Indication: ANXIETY
  3. XANAX [Concomitant]
  4. LUNESTA [Concomitant]

REACTIONS (8)
  - ALOPECIA [None]
  - ANXIETY [None]
  - CONDITION AGGRAVATED [None]
  - DECREASED APPETITE [None]
  - DEPRESSION [None]
  - INSOMNIA [None]
  - MIDDLE INSOMNIA [None]
  - WEIGHT DECREASED [None]
